FAERS Safety Report 13243331 (Version 1)
Quarter: 2017Q1

REPORT INFORMATION
  Report Type: Spontaneous
  Country: US (occurrence: US)
  Receive Date: 20170216
  Receipt Date: 20170216
  Transmission Date: 20170428
  Serious: No
  Sender: FDA-Public Use
  Company Number: US-ALLERGAN-1677527US

PATIENT
  Age: 57 Year
  Sex: Female

DRUGS (1)
  1. KYBELLA [Suspect]
     Active Substance: DEOXYCHOLIC ACID
     Indication: JAW DISORDER
     Dosage: 4 UNK, SINGLE
     Route: 058
     Dates: start: 2016, end: 2016

REACTIONS (1)
  - Dyskinesia [Recovered/Resolved with Sequelae]

NARRATIVE: CASE EVENT DATE: 2016
